FAERS Safety Report 10359793 (Version 1)
Quarter: 2014Q3

REPORT INFORMATION
  Report Type: Spontaneous
  Country: ZA (occurrence: ZA)
  Receive Date: 20140804
  Receipt Date: 20140804
  Transmission Date: 20150326
  Serious: Yes (Hospitalization)
  Sender: FDA-Public Use
  Company Number: ZA-NOVOPROD-417700

PATIENT
  Sex: Male
  Weight: 3.8 kg

DRUGS (4)
  1. PROTAPHANE [Suspect]
     Active Substance: INSULIN HUMAN
     Indication: TYPE 2 DIABETES MELLITUS
     Dosage: 20 IU, SINGLE
     Route: 064
     Dates: start: 20140402
  2. NOVORAPID [Suspect]
     Active Substance: INSULIN ASPART
     Indication: TYPE 2 DIABETES MELLITUS
     Dosage: 10 IU, TID
     Route: 064
     Dates: start: 20140402
  3. NOVORAPID [Suspect]
     Active Substance: INSULIN ASPART
     Dosage: 5 IU, TID ( BEFORE MEALS)
     Route: 064
  4. PROTAPHANE [Suspect]
     Active Substance: INSULIN HUMAN
     Dosage: 10 IU, SINGLE (BEFORE SUPPER)
     Route: 064

REACTIONS (2)
  - Foetal exposure during pregnancy [Recovered/Resolved]
  - Premature baby [Recovered/Resolved]

NARRATIVE: CASE EVENT DATE: 20140402
